FAERS Safety Report 13523961 (Version 1)
Quarter: 2017Q2

REPORT INFORMATION
  Report Type: Spontaneous
  Country: US (occurrence: US)
  Receive Date: 20170508
  Receipt Date: 20170508
  Transmission Date: 20170830
  Serious: No
  Sender: FDA-Public Use
  Company Number: US-VIFOR (INTERNATIONAL) INC.-VIT-2017-00751

PATIENT
  Sex: Female

DRUGS (11)
  1. ZINC. [Concomitant]
     Active Substance: ZINC
  2. ARANESP [Concomitant]
     Active Substance: DARBEPOETIN ALFA
  3. NEPHRO-VITE [Concomitant]
  4. CALCITRIOL. [Concomitant]
     Active Substance: CALCITRIOL
  5. ACETYLSALICYLIC ACID [Concomitant]
     Active Substance: ASPIRIN
  6. PARACETAMOL/HYDROCODONE BITARTRATE [Concomitant]
  7. RENVELA [Concomitant]
     Active Substance: SEVELAMER CARBONATE
  8. VELTASSA [Suspect]
     Active Substance: PATIROMER
     Indication: HYPERKALAEMIA
     Route: 048
     Dates: start: 20160929
  9. EMLA [Concomitant]
     Active Substance: LIDOCAINE\PRILOCAINE
  10. FERREX 150 FORTE [Concomitant]
     Active Substance: CYANOCOBALAMIN\FOLIC ACID\IRON
  11. PLAVIX [Concomitant]
     Active Substance: CLOPIDOGREL BISULFATE

REACTIONS (1)
  - Influenza [Unknown]
